FAERS Safety Report 7315380-7 (Version None)
Quarter: 2011Q1

REPORT INFORMATION
  Report Type: 
  Country: None (occurrence: None)
  Receive Date: 20110218
  Receipt Date: 20110218
  Transmission Date: 20110831
  Serious: Yes (Hospitalization)
  Sender: FDA-Public Use
  Company Number: None

PATIENT
  Age: 80 Year
  Sex: Male
  Weight: 77 kg

DRUGS (16)
  1. LANOXIN [Concomitant]
  2. NEXIUM [Concomitant]
  3. ASACOL [Suspect]
  4. PREDNISONE [Concomitant]
  5. VIT D [Concomitant]
  6. VIT B12 [Concomitant]
  7. WARFARIN SODIUM [Suspect]
     Indication: ATRIAL FIBRILLATION
     Dosage: 2 MG M-F, 1 MG S/S DAILY PO CHRONIC
     Route: 048
  8. GEMFIBROZIL [Concomitant]
  9. SENOKOT [Concomitant]
  10. VIT B [Concomitant]
  11. VIT C [Concomitant]
  12. HYDROCODONE BITARTRATE + ACETAMINOPHEN [Concomitant]
  13. LISINOPRIL [Concomitant]
  14. NAPROXEN [Suspect]
  15. PROCHLORPERAZINE [Concomitant]
  16. MAG OX [Concomitant]

REACTIONS (8)
  - METASTASIS [None]
  - MUSCLE HAEMORRHAGE [None]
  - PAIN IN EXTREMITY [None]
  - SPINAL CORD COMPRESSION [None]
  - INTERNATIONAL NORMALISED RATIO ABNORMAL [None]
  - HAEMATOMA [None]
  - HAEMORRHAGE [None]
  - GASTROINTESTINAL DISORDER [None]
